FAERS Safety Report 9900733 (Version 1)
Quarter: 2014Q1

REPORT INFORMATION
  Report Type: Spontaneous
  Country: GB (occurrence: GB)
  Receive Date: 20140217
  Receipt Date: 20140217
  Transmission Date: 20141002
  Serious: Yes (Other)
  Sender: FDA-Public Use
  Company Number: GB-ACCORD-021778

PATIENT
  Sex: Male

DRUGS (4)
  1. FLUOROURACIL [Suspect]
     Indication: COLORECTAL CANCER METASTATIC
     Dosage: RECEIVED 4 CYCLES OF ZALTRAP AND FOLFIRI
     Route: 042
  2. IRINOTECAN [Suspect]
     Indication: COLORECTAL CANCER METASTATIC
     Dosage: RECEIVED 4 CYCLES OF ZALTRAP AND FOLFIRI
     Route: 042
  3. FOLINIC ACID [Suspect]
     Indication: COLORECTAL CANCER METASTATIC
     Dosage: RECEIVED 4 CYCLES OF ZALTRAP AND FOLFIRI
     Route: 042
  4. ZALTRAP [Suspect]
     Indication: COLORECTAL CANCER METASTATIC
     Dosage: RECEIVED 4 CYCLES OF ZALTRAP AND FOLFIRI
     Route: 042

REACTIONS (2)
  - Pulmonary embolism [Not Recovered/Not Resolved]
  - Cardiac disorder [Not Recovered/Not Resolved]
